FAERS Safety Report 6855944-8 (Version None)
Quarter: 2010Q3

REPORT INFORMATION
  Report Type: 
  Country: None (occurrence: None)
  Receive Date: 20100719
  Receipt Date: 20100706
  Transmission Date: 20110219
  Serious: Yes (Hospitalization)
  Sender: FDA-Public Use
  Company Number: JP-JNJFOC-20100701394

PATIENT
  Age: 4 Month
  Sex: Male

DRUGS (3)
  1. INFLIXIMAB, RECOMBINANT [Suspect]
     Indication: KAWASAKI'S DISEASE
     Route: 042
  2. POLYGAM S/D [Concomitant]
     Indication: KAWASAKI'S DISEASE
  3. ASPIRIN [Concomitant]
     Indication: KAWASAKI'S DISEASE

REACTIONS (2)
  - DERMATITIS PSORIASIFORM [None]
  - PUSTULAR PSORIASIS [None]
